FAERS Safety Report 21266401 (Version 2)
Quarter: 2023Q1

REPORT INFORMATION
  Report Type: Report from Study
  Country: JP (occurrence: JP)
  Receive Date: 20220829
  Receipt Date: 20230123
  Transmission Date: 20230418
  Serious: Yes (Death)
  Sender: FDA-Public Use
  Company Number: JP-ABBVIE-20K-087-3281539-00

PATIENT
  Age: 70 Year
  Sex: Male

DRUGS (6)
  1. CARBIDOPA\LEVODOPA [Suspect]
     Active Substance: CARBIDOPA\LEVODOPA
     Indication: Parkinson^s disease
     Dosage: MD: 13 ML, CD: 5.3 ML/HR FOR 14 HOURS, ED: 1.0 ML/UNIT FOR 1
     Route: 050
     Dates: start: 20171024, end: 20171106
  2. CARBIDOPA\LEVODOPA [Suspect]
     Active Substance: CARBIDOPA\LEVODOPA
     Dosage: MD: 13 ML, CD: 5.3 ML/HR FOR 15 HOURS, ED: 1.0 ML/UNIT FOR 1
     Route: 050
     Dates: start: 20171107
  3. AMANTADINE HYDROCHLORIDE [Concomitant]
     Active Substance: AMANTADINE HYDROCHLORIDE
     Indication: Parkinson^s disease
     Route: 048
  4. ROTIGOTINE [Concomitant]
     Active Substance: ROTIGOTINE
     Indication: Parkinson^s disease
     Dosage: AS NEEDED
     Route: 062
  5. SILODOSIN [Concomitant]
     Active Substance: SILODOSIN
     Indication: Product used for unknown indication
     Route: 048
  6. SODIUM RISEDRONATE HYDRATESODIUM RISEDRONATE HYDRATE [Concomitant]
     Indication: Product used for unknown indication
     Route: 048

REACTIONS (4)
  - Coronavirus infection [Fatal]
  - Intentional product misuse [Unknown]
  - On and off phenomenon [Unknown]
  - Pneumonia [Fatal]

NARRATIVE: CASE EVENT DATE: 20200211
